FAERS Safety Report 4353583-4 (Version None)
Quarter: 2004Q2

REPORT INFORMATION
  Report Type: 
  Country: None (occurrence: None)
  Receive Date: 20040505
  Receipt Date: 20040426
  Transmission Date: 20050107
  Serious: Yes (Hospitalization)
  Sender: FDA-Public Use
  Company Number: GB-BRISTOL-MYERS SQUIBB COMPANY-12574968

PATIENT
  Age: 89 Year
  Sex: Female

DRUGS (5)
  1. METFORMIN HCL [Suspect]
     Indication: DIABETES MELLITUS
     Route: 048
     Dates: start: 20040331, end: 20040403
  2. ASPIRIN [Concomitant]
     Route: 048
  3. CLARITHROMYCIN [Concomitant]
     Indication: PNEUMONIA
     Route: 048
     Dates: start: 20040325, end: 20040404
  4. DIGOXIN [Concomitant]
     Indication: ATRIAL FIBRILLATION
     Route: 048
     Dates: start: 20040326
  5. CEFRADINE [Concomitant]
     Indication: PNEUMONIA
     Route: 048
     Dates: start: 20040330, end: 20040404

REACTIONS (2)
  - SWELLING FACE [None]
  - TONGUE DISCOLOURATION [None]
